FAERS Safety Report 13509616 (Version 1)
Quarter: 2017Q2

REPORT INFORMATION
  Report Type: Spontaneous
  Country: US (occurrence: US)
  Receive Date: 20170503
  Receipt Date: 20170503
  Transmission Date: 20170830
  Serious: No
  Sender: FDA-Public Use
  Company Number: US-SA-2017SA026748

PATIENT
  Age: 86 Year
  Sex: Female
  Weight: 86.1 kg

DRUGS (8)
  1. METOPROLOL. [Concomitant]
     Active Substance: METOPROLOL
     Indication: BLOOD PRESSURE MEASUREMENT
     Dosage: DOSE/FREQ: 1/2-2 PER DAY (UNITS UNSPECIFIED)
  2. ALIROCUMAB PREFILLED PEN [Suspect]
     Active Substance: ALIROCUMAB
     Dates: start: 2016
  3. HYDROCHLOROTHIAZIDE. [Concomitant]
     Active Substance: HYDROCHLOROTHIAZIDE
     Indication: BLOOD PRESSURE MEASUREMENT
     Dosage: DOSE/FREQ: 1 DAILY (UNITS UNSPECIFIED)
  4. LOSARTAN. [Concomitant]
     Active Substance: LOSARTAN
     Dosage: DOSE/FREQ: 1 DAILY (UNITS UNSPECIFIED)
  5. PRALUENT [Suspect]
     Active Substance: ALIROCUMAB
     Route: 065
     Dates: start: 2016
  6. COUMADIN [Concomitant]
     Active Substance: WARFARIN SODIUM
  7. AMLODIPINE [Concomitant]
     Active Substance: AMLODIPINE BESYLATE
     Dosage: DOSE/FREQ: 1/2 DAILY (UNITS UNSPECIFIED)
  8. ASPIRIN. [Concomitant]
     Active Substance: ASPIRIN
     Dosage: DOSE/FREQ: 1/2 DAILY (UNITS UNSPECIFIED)

REACTIONS (2)
  - Injection site haemorrhage [Unknown]
  - Device use issue [Unknown]
